FAERS Safety Report 24641188 (Version 2)
Quarter: 2024Q4

REPORT INFORMATION
  Report Type: Spontaneous
  Country: JP (occurrence: JP)
  Receive Date: 20241120
  Receipt Date: 20241211
  Transmission Date: 20250115
  Serious: Yes (Life-Threatening, Hospitalization, Other)
  Sender: CHEPLAPHARM
  Company Number: JP-CP_KK-2024JP002031

PATIENT
  Age: 5 Decade
  Sex: Female

DRUGS (3)
  1. OLANZAPINE [Suspect]
     Active Substance: OLANZAPINE
     Indication: Product used for unknown indication
  2. BLONANSERIN [Suspect]
     Active Substance: BLONANSERIN
     Indication: Product used for unknown indication
  3. TRABECTEDIN [Concomitant]
     Active Substance: TRABECTEDIN
     Indication: Dermatofibrosarcoma protuberans

REACTIONS (3)
  - Hypokalaemia [Recovering/Resolving]
  - Long QT syndrome [Not Recovered/Not Resolved]
  - Ventricular tachycardia [Recovering/Resolving]

NARRATIVE: CASE EVENT DATE: 20240104
